FAERS Safety Report 11952955 (Version 1)
Quarter: 2016Q1

REPORT INFORMATION
  Report Type: Spontaneous
  Country: US (occurrence: US)
  Receive Date: 20160126
  Receipt Date: 20160126
  Transmission Date: 20160526
  Serious: No
  Sender: FDA-Public Use
  Company Number: US-DEXPHARM-20152165

PATIENT
  Age: 64 Year
  Sex: Female

DRUGS (1)
  1. OMEPRAZOLE DELAYED RELEASE [Suspect]
     Active Substance: OMEPRAZOLE
     Indication: GASTRIC DISORDER
     Dosage: UNK
     Route: 048
     Dates: start: 2014

REACTIONS (2)
  - Osteoporosis [Not Recovered/Not Resolved]
  - Weight decreased [Not Recovered/Not Resolved]

NARRATIVE: CASE EVENT DATE: 2015
